FAERS Safety Report 15562724 (Version 1)
Quarter: 2018Q4

REPORT INFORMATION
  Report Type: Spontaneous
  Country: NL (occurrence: NL)
  Receive Date: 20181029
  Receipt Date: 20181029
  Transmission Date: 20190205
  Serious: Yes (Other)
  Sender: FDA-Public Use
  Company Number: NL-PFIZER INC-2018353583

PATIENT
  Age: 54 Year
  Sex: Female
  Weight: 94 kg

DRUGS (10)
  1. LEVONORGESTREL AND ETHINYL ESTRADIOL [Concomitant]
     Active Substance: ETHINYL ESTRADIOL\LEVONORGESTREL
     Dosage: UNK
     Route: 048
  2. SOMAVERT [Suspect]
     Active Substance: PEGVISOMANT
     Dosage: 10 MG, 1X/DAY
     Route: 058
     Dates: start: 201708
  3. CALCIUM CARBONATE;CHOLECALCIFEROL;SODIUM [Concomitant]
     Dosage: 1 DF, 1X/DAY
     Route: 048
  4. INSULINE ASPARTATE [Concomitant]
     Indication: BLOOD GLUCOSE INCREASED
     Dosage: UNK
  5. LEVOTHYROXIN [Concomitant]
     Active Substance: LEVOTHYROXINE
     Dosage: 125 UG, 1X/DAY
     Route: 048
  6. SOMAVERT [Suspect]
     Active Substance: PEGVISOMANT
     Dosage: UNK
     Route: 058
     Dates: start: 20180901
  7. LEVOTHYROXIN [Concomitant]
     Active Substance: LEVOTHYROXINE
     Dosage: 175 UG, 1X/DAY
     Route: 048
  8. HYDROCORTISONE. [Concomitant]
     Active Substance: HYDROCORTISONE
     Dosage: UNK
     Route: 048
  9. SOMAVERT [Suspect]
     Active Substance: PEGVISOMANT
     Indication: ACROMEGALY
     Dosage: 20 MG, 1X/DAY
     Route: 058
     Dates: start: 20170822, end: 201708
  10. AMLODIPINE [Concomitant]
     Active Substance: AMLODIPINE BESYLATE
     Dosage: 10 MG, 1X/DAY
     Route: 048

REACTIONS (2)
  - Blood glucose increased [Unknown]
  - Condition aggravated [Unknown]

NARRATIVE: CASE EVENT DATE: 20180901
